FAERS Safety Report 21617516 (Version 1)
Quarter: 2022Q4

REPORT INFORMATION
  Report Type: Spontaneous
  Country: FR (occurrence: FR)
  Receive Date: 20221119
  Receipt Date: 20221119
  Transmission Date: 20230112
  Serious: Yes (Death)
  Sender: FDA-Public Use
  Company Number: None

PATIENT
  Age: 60 Year
  Sex: Female

DRUGS (8)
  1. CLOZAPINE [Suspect]
     Active Substance: CLOZAPINE
     Indication: Psychotic disorder
     Dosage: THERAPY START DATE  : NASK, FREQUENCY TIME : 1 DAY, UNIT DOSE :  300 MG
     Route: 065
     Dates: end: 20221015
  2. QUETIAPINE [Suspect]
     Active Substance: QUETIAPINE
     Indication: Psychotic disorder
     Dosage: UNIT DOSE :  300MG, FREQUENCY TIME : 1 DAY, THERAPY START DATE  : NASK
     Route: 065
     Dates: end: 20221015
  3. OXAZEPAM [Suspect]
     Active Substance: OXAZEPAM
     Indication: Psychotic disorder
     Dosage: THERAPY START DATE  : NASK , UNIT DOSE :   10 MG, FREQUENCY TIME : 1 DAY
     Route: 065
     Dates: end: 20221015
  4. VIMPAT [Suspect]
     Active Substance: LACOSAMIDE
     Indication: Psychotic disorder
     Dosage: UNIT DOSE AND STRENGTH : 100 MG, FREQUENCY TIME : 1 DAY, THERAPY START DATE  : NASK
     Route: 065
     Dates: end: 20221015
  5. DEPAKOTE [Suspect]
     Active Substance: DIVALPROEX SODIUM
     Indication: Psychotic disorder
     Dosage: THERAPY START DATE  : NASK , STRENGTH : 500 MG, UNIT DOSE : 500 MG, FREQUENCY TIME : 1 DAY
     Route: 065
     Dates: end: 20221015
  6. TROPATEPINE HYDROCHLORIDE [Suspect]
     Active Substance: TROPATEPINE HYDROCHLORIDE
     Indication: Psychotic disorder
     Dosage: STRENGTH : 10 MG, UNIT DOSE :   500MG, FREQUENCY TIME : 1 DAY, THERAPY START DATE  : NASK
     Route: 065
     Dates: end: 20221015
  7. PANTOPRAZOLE [Concomitant]
     Active Substance: PANTOPRAZOLE
     Indication: Product used for unknown indication
     Dosage: UNIT DOSE : 40 MG, FREQUENCY TIME : 1 DAY
     Dates: end: 20221015
  8. ERYTHROGEL [Concomitant]
     Indication: Product used for unknown indication
     Dosage: STRENGTH :  4 PER CENT, GEL FOR LOCAL APPLICATION

REACTIONS (1)
  - Cardio-respiratory arrest [Fatal]

NARRATIVE: CASE EVENT DATE: 20221015
